FAERS Safety Report 23282068 (Version 1)
Quarter: 2023Q4

REPORT INFORMATION
  Report Type: Spontaneous
  Country: PL (occurrence: PL)
  Receive Date: 20231211
  Receipt Date: 20231211
  Transmission Date: 20240109
  Serious: Yes (Other)
  Sender: FDA-Public Use
  Company Number: PL-EMA-DD-20230802-225467-145037

PATIENT
  Age: 69 Year
  Sex: Female

DRUGS (2)
  1. QUETIAPINE [Suspect]
     Active Substance: QUETIAPINE
     Indication: Sleep disorder
     Dosage: 25 MILLIGRAM, QD (MG/24HR, PATIENT APPLIED ONLY ONE DOSE)
     Route: 048
  2. QUETIAPINE [Suspect]
     Active Substance: QUETIAPINE
     Indication: Insomnia

REACTIONS (14)
  - Fear of death [Recovering/Resolving]
  - Poisoning [Unknown]
  - Insomnia [Recovered/Resolved]
  - Malaise [Recovered/Resolved]
  - Toxicity to various agents [Unknown]
  - Anticholinergic syndrome [Unknown]
  - Anxiety [Recovered/Resolved]
  - Palpitations [Recovering/Resolving]
  - Asthenia [Recovering/Resolving]
  - Somnolence [Recovering/Resolving]
  - Dizziness [Recovering/Resolving]
  - Illness [Recovering/Resolving]
  - Persistent depressive disorder [Unknown]
  - Anxiety [Recovering/Resolving]
